FAERS Safety Report 8363000-5 (Version None)
Quarter: 2012Q1

REPORT INFORMATION
  Report Type: 
  Country: None (occurrence: None)
  Receive Date: 20120323
  Receipt Date: 20110620
  Transmission Date: 20120608
  Serious: Yes (Hospitalization, Other)
  Sender: FDA-Public Use
  Company Number: 163-21880-11023223

PATIENT
  Age: 81 Year
  Sex: Male

DRUGS (8)
  1. COUMADIN [Concomitant]
  2. PROTONIX [Concomitant]
  3. NYSTATIN [Concomitant]
  4. REVLIMID [Suspect]
     Indication: 5Q MINUS SYNDROME
     Dosage: 10 MG, 1 IN 1 D, PO
     Route: 048
     Dates: start: 20110220, end: 20110225
  5. ALLOPURINOL [Concomitant]
  6. LASIX [Concomitant]
  7. PROPRANOLOL [Concomitant]
  8. NADOLOL [Concomitant]

REACTIONS (5)
  - OEDEMA PERIPHERAL [None]
  - RASH [None]
  - RASH PRURITIC [None]
  - FACE OEDEMA [None]
  - CELLULITIS [None]
